FAERS Safety Report 9761670 (Version 1)
Quarter: 2013Q4

REPORT INFORMATION
  Report Type: Spontaneous
  Country: FR (occurrence: FR)
  Receive Date: 20131216
  Receipt Date: 20131216
  Transmission Date: 20140711
  Serious: Yes (Hospitalization)
  Sender: FDA-Public Use
  Company Number: FR-PFIZER INC-2013351797

PATIENT
  Age: 55 Year
  Sex: Male

DRUGS (9)
  1. DALACINE [Suspect]
     Dosage: UNK
     Route: 048
     Dates: start: 20130913, end: 20130918
  2. OFLOCET [Suspect]
     Dosage: UNK
     Route: 048
     Dates: start: 20130913, end: 20130918
  3. THERALENE [Concomitant]
     Route: 048
  4. SEROPLEX [Concomitant]
     Indication: DEPRESSION
     Route: 048
  5. SERESTA [Concomitant]
     Indication: ANXIETY
     Route: 048
  6. EUPANTOL [Concomitant]
     Indication: SKIN ULCER
     Route: 048
  7. BUSPIRONE HYDROCHLORIDE [Concomitant]
     Indication: ANXIETY
     Route: 048
  8. ATARAX [Concomitant]
     Indication: ANXIETY
     Route: 042
  9. ALDACTONE [Concomitant]
     Indication: HYPERTENSION
     Route: 048

REACTIONS (1)
  - Pancytopenia [Not Recovered/Not Resolved]
